APPROVED DRUG PRODUCT: BEVYXXA
Active Ingredient: BETRIXABAN
Strength: 80MG
Dosage Form/Route: CAPSULE;ORAL
Application: N208383 | Product #002
Applicant: PORTOLA PHARMACEUTICALS INC
Approved: Jun 23, 2017 | RLD: Yes | RS: No | Type: DISCN

PATENTS:
Patent 9555023 | Expires: Nov 7, 2026
Patent 8404724 | Expires: Mar 29, 2031
Patent 8557852 | Expires: Sep 8, 2028
Patent 8557852 | Expires: Sep 8, 2028
Patent 8987463 | Expires: Dec 28, 2030
Patent 7598276 | Expires: Nov 8, 2026